FAERS Safety Report 5348469-2 (Version None)
Quarter: 2007Q2

REPORT INFORMATION
  Report Type: 
  Country: None (occurrence: None)
  Receive Date: 20070606
  Receipt Date: 20070525
  Transmission Date: 20071010
  Serious: Yes (Other)
  Sender: FDA-Public Use
  Company Number: FR-PFIZER INC-2007042422

PATIENT
  Age: 62 Year
  Sex: Female

DRUGS (1)
  1. LYRICA [Suspect]
     Indication: COMPLEX REGIONAL PAIN SYNDROME
     Dates: start: 20061101, end: 20070401

REACTIONS (9)
  - BLOOD CORTISOL INCREASED [None]
  - CHEST DISCOMFORT [None]
  - DRUG INEFFECTIVE [None]
  - FACE OEDEMA [None]
  - FATIGUE [None]
  - MEMORY IMPAIRMENT [None]
  - SOMNOLENCE [None]
  - SPEECH DISORDER [None]
  - WEIGHT INCREASED [None]
